FAERS Safety Report 6766742-8 (Version None)
Quarter: 2010Q2

REPORT INFORMATION
  Report Type: 
  Country: None (occurrence: None)
  Receive Date: 20100609
  Receipt Date: 20100528
  Transmission Date: 20101027
  Serious: Yes (Hospitalization, Congenital Anomaly)
  Sender: FDA-Public Use
  Company Number: LEO-2010-00466

PATIENT
  Sex: Male
  Weight: 0.763 kg

DRUGS (3)
  1. INNOHEP [Suspect]
     Indication: DRUG EXPOSURE DURING PREGNANCY
     Dosage: TRANSPLACENTAL
     Route: 064
     Dates: start: 20050520, end: 20050524
  2. PONDOCILLIN (PIVAMPICILLIN HYDROCHLORIDE) [Concomitant]
  3. CELESTON (BETAMETHASONE) [Concomitant]

REACTIONS (3)
  - MATERNAL DRUGS AFFECTING FOETUS [None]
  - PREMATURE BABY [None]
  - TRISOMY 21 [None]
